FAERS Safety Report 14597117 (Version 1)
Quarter: 2018Q1

REPORT INFORMATION
  Report Type: Spontaneous
  Country: US (occurrence: US)
  Receive Date: 20180305
  Receipt Date: 20180305
  Transmission Date: 20180509
  Serious: Yes (Hospitalization, Other)
  Sender: FDA-Public Use
  Company Number: US-VISTAPHARM, INC.-VER201802-000453

PATIENT
  Age: 57 Year
  Sex: Male

DRUGS (7)
  1. LACTULOSE. [Suspect]
     Active Substance: LACTULOSE
  2. LACTULOSE. [Suspect]
     Active Substance: LACTULOSE
  3. LACTULOSE. [Suspect]
     Active Substance: LACTULOSE
  4. LACTULOSE. [Suspect]
     Active Substance: LACTULOSE
     Indication: HEPATIC ENCEPHALOPATHY
     Route: 048
  5. LACTULOSE. [Suspect]
     Active Substance: LACTULOSE
     Route: 048
  6. DULCOLAX NOS [Concomitant]
     Active Substance: BISACODYL OR DOCUSATE SODIUM
  7. NEOMYCIN. [Concomitant]
     Active Substance: NEOMYCIN

REACTIONS (3)
  - Pneumoperitoneum [Recovered/Resolved]
  - Constipation [Unknown]
  - Pneumatosis intestinalis [Recovered/Resolved]
